FAERS Safety Report 10138089 (Version 3)
Quarter: 2014Q3

REPORT INFORMATION
  Report Type: Spontaneous
  Country: US (occurrence: US)
  Receive Date: 20140429
  Receipt Date: 20140918
  Transmission Date: 20150326
  Serious: Yes (Hospitalization)
  Sender: FDA-Public Use
  Company Number: US-BAYER-2014-060360

PATIENT
  Age: 38 Year
  Sex: Female
  Weight: 56.69 kg

DRUGS (3)
  1. OXYCODONE [Concomitant]
     Active Substance: OXYCODONE
  2. MOTRIN [Concomitant]
     Active Substance: IBUPROFEN
     Indication: PAIN
  3. YAZ [Suspect]
     Active Substance: DROSPIRENONE\ETHINYL ESTRADIOL
     Indication: MENSTRUAL CYCLE MANAGEMENT
     Dosage: UNK
     Route: 048
     Dates: start: 201008, end: 201010

REACTIONS (9)
  - Injury [None]
  - Anxiety [None]
  - Emotional distress [None]
  - Deep vein thrombosis [None]
  - Thrombophlebitis superficial [None]
  - Quality of life decreased [None]
  - Pain [None]
  - Fear of disease [None]
  - Anhedonia [None]

NARRATIVE: CASE EVENT DATE: 20101014
